FAERS Safety Report 7496152-X (Version None)
Quarter: 2011Q2

REPORT INFORMATION
  Report Type: 
  Country: None (occurrence: None)
  Receive Date: 20110523
  Receipt Date: 20110509
  Transmission Date: 20111010
  Serious: Yes (Hospitalization, Other)
  Sender: FDA-Public Use
  Company Number: PHHY2010NL52137

PATIENT
  Sex: Male

DRUGS (23)
  1. ZOMETA [Suspect]
     Dosage: 4 MG/ 5ML
     Dates: start: 20100416
  2. ZOMETA [Suspect]
     Dosage: 4 MG/ 5ML
     Dates: start: 20100705
  3. AMLODIPINE [Concomitant]
  4. ZOLADEX [Concomitant]
  5. ACETAMINOPHEN [Concomitant]
  6. ZOMETA [Suspect]
     Indication: PROSTATE CANCER METASTATIC
     Dosage: 4 MG/ 5ML
     Dates: start: 20100319
  7. ZOMETA [Suspect]
     Dosage: UNK
     Route: 042
     Dates: start: 20110509
  8. OXAZEPAM [Concomitant]
  9. NEXIUM [Concomitant]
  10. TAMSULOSIN HCL [Concomitant]
     Dosage: UNK
  11. ZOMETA [Suspect]
     Dosage: 4 MG/ 5ML
     Dates: start: 20100831
  12. PREDNISONE [Concomitant]
  13. METOPROLOL SUCCINATE [Concomitant]
  14. OXYCODONE HCL [Concomitant]
     Dosage: 10 MG, 1-4 TABLETS
  15. ENTOCORT EC [Concomitant]
  16. ZOMETA [Suspect]
     Dosage: 4 MG/ 5ML
     Dates: start: 20100520
  17. ZOMETA [Suspect]
     Dosage: 4 MG/ 5ML
     Dates: start: 20100805
  18. ZOMETA [Suspect]
     Dosage: 4MG/5ML
     Route: 042
     Dates: start: 20110412
  19. MOVICOLON [Concomitant]
     Dosage: WHEN NEEDED
  20. ZOMETA [Suspect]
     Dosage: 4 MG/ 5ML
     Dates: start: 20101123
  21. ZOMETA [Suspect]
     Dosage: 4 MG/ 5ML
     Dates: start: 20101220
  22. ZOMETA [Suspect]
     Dosage: 4MG /5 ML
     Dates: start: 20110314
  23. ZOMETA [Suspect]
     Dosage: 4 MG/5 ML
     Dates: start: 20110214

REACTIONS (10)
  - BONE PAIN [None]
  - METASTASES TO BONE [None]
  - FEELING COLD [None]
  - TUMOUR PAIN [None]
  - MUSCULOSKELETAL CHEST PAIN [None]
  - BACK PAIN [None]
  - MUSCULOSKELETAL PAIN [None]
  - MALAISE [None]
  - PLEURAL EFFUSION [None]
  - PROSTATIC SPECIFIC ANTIGEN INCREASED [None]
